FAERS Safety Report 24094642 (Version 1)
Quarter: 2024Q3

REPORT INFORMATION
  Report Type: Spontaneous
  Country: US (occurrence: US)
  Receive Date: 20240716
  Receipt Date: 20240716
  Transmission Date: 20241016
  Serious: Yes (Hospitalization)
  Sender: SCIEGEN
  Company Number: US-SCIEGENP-2024SCLIT00338

PATIENT
  Age: 43 Year
  Sex: Female

DRUGS (1)
  1. METFORMIN HYDROCHLORIDE [Suspect]
     Active Substance: METFORMIN HYDROCHLORIDE
     Indication: Product used for unknown indication
     Dosage: 360 TABLETS OF METFORMIN, EACH CONTAINING 1 GRAM.
     Route: 048

REACTIONS (3)
  - Metabolic acidosis [Unknown]
  - Intentional overdose [Unknown]
  - Hypoglycaemia [Recovered/Resolved]
